FAERS Safety Report 21701224 (Version 1)
Quarter: 2022Q4

REPORT INFORMATION
  Report Type: Spontaneous
  Country: CN (occurrence: CN)
  Receive Date: 20221208
  Receipt Date: 20221208
  Transmission Date: 20230112
  Serious: Yes (Other)
  Sender: FDA-Public Use
  Company Number: CN-BAYER-2022A167236

PATIENT
  Sex: Female

DRUGS (3)
  1. GLUCOBAY [Suspect]
     Active Substance: ACARBOSE
     Indication: Blood glucose abnormal
     Dosage: BEFORE MEAL
     Route: 048
     Dates: end: 2022
  2. GLUCOBAY [Suspect]
     Active Substance: ACARBOSE
     Indication: Blood glucose abnormal
     Dosage: BEFORE MEAL
     Route: 048
     Dates: start: 2022, end: 202212
  3. GLUCOBAY [Suspect]
     Active Substance: ACARBOSE
     Indication: Blood glucose abnormal
     Dosage: BEFORE MEAL
     Route: 048
     Dates: start: 20221204

REACTIONS (5)
  - Diabetes mellitus inadequate control [Recovered/Resolved]
  - Flatulence [Recovered/Resolved]
  - Flatulence [None]
  - Drug ineffective [None]
  - Suspected counterfeit product [None]

NARRATIVE: CASE EVENT DATE: 20220101
